FAERS Safety Report 12409315 (Version 4)
Quarter: 2016Q3

REPORT INFORMATION
  Report Type: Report from Study
  Country: CN (occurrence: CN)
  Receive Date: 20160526
  Receipt Date: 20160825
  Transmission Date: 20161109
  Serious: Yes (Hospitalization)
  Sender: FDA-Public Use
  Company Number: CN-ASTRAZENECA-2016SE54652

PATIENT
  Age: 19925 Day
  Sex: Female
  Weight: 70 kg

DRUGS (5)
  1. HYDROCHLORIDE OXYCODONE HYDROCHLORIDE [Concomitant]
     Route: 048
     Dates: start: 20160311
  2. UKRAINIAN BONE CAPSULE [Concomitant]
     Route: 048
     Dates: start: 20160317
  3. IRESSA [Suspect]
     Active Substance: GEFITINIB
     Indication: NON-SMALL CELL LUNG CANCER
     Route: 048
     Dates: start: 20160531
  4. UBENIMEX CAPSULE [Concomitant]
     Route: 048
     Dates: start: 20160314
  5. IRESSA [Suspect]
     Active Substance: GEFITINIB
     Indication: NON-SMALL CELL LUNG CANCER
     Route: 048
     Dates: start: 20160406, end: 20160518

REACTIONS (1)
  - Duodenal ulcer [Recovered/Resolved]

NARRATIVE: CASE EVENT DATE: 20160429
